FAERS Safety Report 25008744 (Version 3)
Quarter: 2025Q1

REPORT INFORMATION
  Report Type: Spontaneous
  Country: US (occurrence: US)
  Receive Date: 20250225
  Receipt Date: 20250331
  Transmission Date: 20250409
  Serious: No
  Sender: PFIZER
  Company Number: US-PFIZER INC-202500032746

PATIENT
  Age: 70 Year
  Sex: Female

DRUGS (4)
  1. GENOTROPIN [Suspect]
     Active Substance: SOMATROPIN
     Dosage: 0.2 MG, 1X/DAY
  2. VITAMIN B12 [Concomitant]
     Active Substance: CYANOCOBALAMIN
  3. ESTRADIOL [Concomitant]
     Active Substance: ESTRADIOL
  4. PROGESTERONE [Concomitant]
     Active Substance: PROGESTERONE

REACTIONS (2)
  - Device defective [Unknown]
  - Device material issue [Unknown]
